FAERS Safety Report 20873480 (Version 1)
Quarter: 2022Q2

REPORT INFORMATION
  Report Type: Spontaneous
  Country: DE (occurrence: DE)
  Receive Date: 20220525
  Receipt Date: 20220525
  Transmission Date: 20220721
  Serious: Yes (Hospitalization, Other)
  Sender: FDA-Public Use
  Company Number: DE-NOVARTISPH-GXKR2008DE08458

PATIENT
  Age: 68 Year
  Sex: Female
  Weight: 80 kg

DRUGS (6)
  1. OXALIPLATIN [Suspect]
     Active Substance: OXALIPLATIN
     Indication: Colon cancer metastatic
     Dosage: 85 MG/M2, DAY 1, 15 AND  29, 3 CYCLES
     Route: 065
     Dates: start: 2005
  2. OXALIPLATIN [Suspect]
     Active Substance: OXALIPLATIN
     Dosage: DOSE REDUCTION TO 75 PERCENT
     Route: 065
  3. FLUOROURACIL [Suspect]
     Active Substance: FLUOROURACIL
     Indication: Colon cancer metastatic
     Dosage: 2000 MG/M2, DAYS 1, 8, 15, 22, 29, 36, REPETITION EVERY 7 WEEKS, FREQ: PER_CYCLE
     Route: 065
  4. LEUCOVORIN [Concomitant]
     Active Substance: LEUCOVORIN
     Indication: Colon cancer metastatic
     Dosage: 500 MG/M2, DAYS 1, 8, 15, 22, 29, 26, REPETITION EVERY 7 WEEKS, FREQ: PER CYCLE
     Route: 065
  5. LEUCOVORIN CALCIUM [Concomitant]
     Active Substance: LEUCOVORIN CALCIUM
     Indication: Colon cancer metastatic
     Dosage: 500 MG/M2, CYCLIC (DAYS 1, 8, 15, 22, 29, 26, REPETITION EVERY 7 WEEKS)
     Route: 065
  6. AVASTIN [Concomitant]
     Active Substance: BEVACIZUMAB
     Indication: Colon cancer metastatic
     Dosage: 5 MG/KG
     Route: 065

REACTIONS (9)
  - Autoimmune haemolytic anaemia [Recovered/Resolved]
  - Jaundice [Recovered/Resolved]
  - Dyspnoea exertional [Recovered/Resolved]
  - Anisocytosis [Recovered/Resolved]
  - Polychromasia [Recovered/Resolved]
  - Diarrhoea [Unknown]
  - Leukopenia [Recovered/Resolved]
  - Thrombocytopenia [Recovering/Resolving]
  - Neutropenia [Recovered/Resolved]
